FAERS Safety Report 8428920-1 (Version None)
Quarter: 2012Q2

REPORT INFORMATION
  Report Type: 
  Country: None (occurrence: None)
  Receive Date: 20120612
  Receipt Date: 20120604
  Transmission Date: 20120825
  Serious: Yes (Hospitalization)
  Sender: FDA-Public Use
  Company Number: US-ASTELLAS-2012US004050

PATIENT
  Sex: Male
  Weight: 117 kg

DRUGS (13)
  1. TEKTURNA [Concomitant]
     Indication: PRODUCT USED FOR UNKNOWN INDICATION
     Dosage: 150/25 MG, UID/QD
     Route: 065
  2. METFORMIN HCL [Concomitant]
     Indication: PRODUCT USED FOR UNKNOWN INDICATION
     Dosage: 500 MG, BID
     Route: 065
  3. LEXISCAN [Suspect]
     Indication: SCAN MYOCARDIAL PERFUSION
     Dosage: 0.4 MG, TOTAL DOSE
     Route: 042
     Dates: start: 20120416, end: 20120416
  4. GLIMEPIRIDE [Concomitant]
     Indication: PRODUCT USED FOR UNKNOWN INDICATION
     Dosage: UNK
     Route: 065
  5. ENALAPRIL MALEATE [Concomitant]
     Indication: PRODUCT USED FOR UNKNOWN INDICATION
     Dosage: 20 MG, BID
     Route: 065
  6. MAG-OX [Concomitant]
     Indication: PRODUCT USED FOR UNKNOWN INDICATION
     Dosage: 400 MG, BID
     Route: 065
  7. ASPIRIN [Concomitant]
     Indication: PRODUCT USED FOR UNKNOWN INDICATION
     Dosage: 81 MG, BID
     Route: 065
  8. INDOMETHACIN [Concomitant]
     Indication: PRODUCT USED FOR UNKNOWN INDICATION
     Dosage: 50 MG, BID
     Route: 065
  9. METOPROLOL TARTRATE [Concomitant]
     Indication: PRODUCT USED FOR UNKNOWN INDICATION
     Dosage: 50 MG, TID
     Route: 065
  10. AMLODIPINE BESYLATE [Concomitant]
     Indication: PRODUCT USED FOR UNKNOWN INDICATION
     Dosage: 5 MG, UID/QD
     Route: 065
  11. NITROGLYCERIN [Concomitant]
     Indication: PALPITATIONS
     Dosage: UNK
     Route: 060
  12. GLYBURIDE [Concomitant]
     Indication: PRODUCT USED FOR UNKNOWN INDICATION
     Dosage: 2.5 MG, TID
     Route: 065
  13. METOPROLOL TARTRATE [Concomitant]
     Dosage: 25 MG, BID
     Route: 048
     Dates: start: 20120416

REACTIONS (16)
  - CEREBROVASCULAR ACCIDENT [None]
  - DYSLIPIDAEMIA [None]
  - CHEST PAIN [None]
  - MYOCARDIAL INFARCTION [None]
  - LOSS OF CONSCIOUSNESS [None]
  - TRANSIENT ISCHAEMIC ATTACK [None]
  - ARTERIOSPASM CORONARY [None]
  - VISION BLURRED [None]
  - DIZZINESS [None]
  - SOMNOLENCE [None]
  - SUPRAVENTRICULAR EXTRASYSTOLES [None]
  - ASTHENIA [None]
  - DYSPNOEA [None]
  - CARDIAC MURMUR [None]
  - FATIGUE [None]
  - BLOOD GLUCOSE INCREASED [None]
